FAERS Safety Report 12340690 (Version 4)
Quarter: 2016Q3

REPORT INFORMATION
  Report Type: Spontaneous
  Country: US (occurrence: US)
  Receive Date: 20160506
  Receipt Date: 20160919
  Transmission Date: 20161109
  Serious: Yes (Other)
  Sender: FDA-Public Use
  Company Number: US-TEVA-657471USA

PATIENT
  Age: 75 Year
  Sex: Female
  Weight: 56.75 kg

DRUGS (25)
  1. BENICAR HCT [Concomitant]
     Active Substance: HYDROCHLOROTHIAZIDE\OLMESARTAN MEDOXOMIL
     Indication: BLOOD PRESSURE ABNORMAL
     Dosage: 40/12.5MG
     Route: 048
     Dates: start: 2005
  2. CALCIUM CARBONATE VITAMIN D [Concomitant]
     Active Substance: CALCIUM CARBONATE\VITAMIN D
  3. IBUPROFEN. [Concomitant]
     Active Substance: IBUPROFEN
     Dosage: Q 4-6 AS NEEDED
  4. MUL TLVLTAMINS [Concomitant]
  5. PROBIOTIC PRODUCT [Concomitant]
  6. PROCHLORPERAZINE MALEATE. [Concomitant]
     Active Substance: PROCHLORPERAZINE MALEATE
     Dosage: 1 Q6 FOR NAUSEA
     Route: 048
  7. CARVEDILOL. [Concomitant]
     Active Substance: CARVEDILOL
     Dates: start: 201510
  8. LACTOBACILLUS RHAMNOSUS [Concomitant]
     Active Substance: LACTOBACILLUS RHAMNOSUS
     Route: 048
  9. BIOTIN [Concomitant]
     Active Substance: BIOTIN
  10. ASCORBIC ACID (VIT C) [Concomitant]
     Dosage: 500 MILLIGRAM DAILY;
  11. KRILL OIL [Concomitant]
     Active Substance: DIETARY SUPPLEMENT
     Dosage: 353 MILLIGRAM DAILY;
     Route: 048
  12. TRAZODONE [Concomitant]
     Active Substance: TRAZODONE HYDROCHLORIDE
     Indication: SLEEP DISORDER
     Route: 048
     Dates: start: 2005
  13. ASPIRIN. [Concomitant]
     Active Substance: ASPIRIN
     Dosage: 81 MILLIGRAM DAILY;
     Route: 048
  14. COENZYME Q10 [Concomitant]
     Active Substance: UBIDECARENONE
     Route: 048
  15. ONDANSETRON HCI [Concomitant]
     Dosage: 1 Q8 PRN NAUSEA
     Route: 048
  16. LETROZOLE. [Suspect]
     Active Substance: LETROZOLE
     Indication: BREAST CANCER
     Dosage: 2.5 MILLIGRAM DAILY;
     Route: 048
     Dates: start: 20160123
  17. OMEPRAZOLE. [Concomitant]
     Active Substance: OMEPRAZOLE
     Indication: GASTROOESOPHAGEAL REFLUX DISEASE
     Dosage: 20 MILLIGRAM DAILY;
     Route: 048
     Dates: start: 2007
  18. CHOLECALCIFEROL [Concomitant]
     Active Substance: CHOLECALCIFEROL
     Dosage: 2000 IU (INTERNATIONAL UNIT) DAILY;
  19. MENAQUINONE-7 [Concomitant]
     Route: 048
  20. OLMESARTAN MEDOXOMIL-HCTZ [Concomitant]
     Dosage: 40/12.5MG
     Route: 048
  21. ALPRAZOLAM. [Concomitant]
     Active Substance: ALPRAZOLAM
  22. GUAIFENESIN-CODEINE [Concomitant]
     Indication: COUGH
     Dosage: 100-10 MG/5ML PRN Q 4 -6 COUGH
  23. MAGNESIUM [Concomitant]
     Active Substance: MAGNESIUM
     Dosage: 250 MILLIGRAM DAILY;
     Route: 048
  24. IBRANCE [Suspect]
     Active Substance: PALBOCICLIB
     Indication: BREAST CANCER METASTATIC
     Dosage: ONE A DAY BY MOUTH FOR 21 DAYS AND OFF FOR 1 WEEK
     Route: 048
     Dates: start: 20160123
  25. DIPHENHYDRAMINE. [Concomitant]
     Active Substance: DIPHENHYDRAMINE
     Dosage: 12.5MG/5ML, 25 MG PO DAILY AS NEEDED FOR ALLERGIES

REACTIONS (5)
  - Dry throat [Recovering/Resolving]
  - Fatigue [Recovering/Resolving]
  - Throat tightness [Recovered/Resolved]
  - Dyspnoea [Recovering/Resolving]
  - Anxiety [Unknown]

NARRATIVE: CASE EVENT DATE: 201602
